FAERS Safety Report 25155394 (Version 2)
Quarter: 2025Q2

REPORT INFORMATION
  Report Type: Spontaneous
  Country: US (occurrence: US)
  Receive Date: 20250403
  Receipt Date: 20250424
  Transmission Date: 20250717
  Serious: No
  Sender: ROCHE
  Company Number: US-ROCHE-10000244764

PATIENT
  Sex: Female

DRUGS (1)
  1. XOLAIR [Suspect]
     Active Substance: OMALIZUMAB
     Indication: Chronic spontaneous urticaria
     Route: 058

REACTIONS (5)
  - Nausea [Unknown]
  - Vomiting [Unknown]
  - Cough [Unknown]
  - Pruritus [Unknown]
  - Urticaria [Unknown]
